FAERS Safety Report 6931077-7 (Version None)
Quarter: 2010Q3

REPORT INFORMATION
  Report Type: 
  Country: None (occurrence: None)
  Receive Date: 20100817
  Receipt Date: 20100817
  Transmission Date: 20110219
  Serious: Yes (Other)
  Sender: FDA-Public Use
  Company Number: None

PATIENT
  Age: 39 Year
  Sex: Female
  Weight: 118.3888 kg

DRUGS (3)
  1. GABAPENTIN [Suspect]
     Indication: BURNING SENSATION
     Dosage: 90 CAPSULES
     Dates: start: 20100729, end: 20100814
  2. GABAPENTIN [Suspect]
     Indication: LIP PAIN
     Dosage: 90 CAPSULES
     Dates: start: 20100729, end: 20100814
  3. GABAPENTIN [Suspect]
     Indication: STOMATITIS
     Dosage: 90 CAPSULES
     Dates: start: 20100729, end: 20100814

REACTIONS (9)
  - ASTHENIA [None]
  - CONSTIPATION [None]
  - CRYING [None]
  - DIZZINESS [None]
  - DRUG EXPOSURE VIA BREAST MILK [None]
  - DYSPNOEA [None]
  - FATIGUE [None]
  - INSOMNIA [None]
  - PRURITUS [None]
